FAERS Safety Report 24412630 (Version 1)
Quarter: 2024Q4

REPORT INFORMATION
  Report Type: Spontaneous
  Country: GB (occurrence: GB)
  Receive Date: 20241008
  Receipt Date: 20241008
  Transmission Date: 20250115
  Serious: Yes (Life-Threatening, Hospitalization, Other)
  Sender: BAUSCH AND LOMB
  Company Number: None

PATIENT
  Sex: Female
  Weight: 43 kg

DRUGS (1)
  1. PLENVU [Suspect]
     Active Substance: ASCORBIC ACID\POLYETHYLENE GLYCOL 3350\POTASSIUM CHLORIDE\SODIUM ASCORBATE\SODIUM CHLORIDE\SODIUM SU
     Indication: Bowel preparation
     Route: 065
     Dates: start: 20240822

REACTIONS (9)
  - Concussion [Unknown]
  - Wound [Unknown]
  - Weight decreased [Unknown]
  - Confusional state [Unknown]
  - Amnesia [Unknown]
  - Clumsiness [Unknown]
  - Anxiety [Unknown]
  - Syncope [Recovered/Resolved with Sequelae]
  - Vomiting [Recovered/Resolved with Sequelae]

NARRATIVE: CASE EVENT DATE: 20240101
